FAERS Safety Report 5912079-6 (Version None)
Quarter: 2008Q4

REPORT INFORMATION
  Report Type: 
  Country: None (occurrence: None)
  Receive Date: 20081006
  Receipt Date: 20081006
  Transmission Date: 20090506
  Serious: Yes (Hospitalization)
  Sender: FDA-Public Use
  Company Number: None

PATIENT
  Age: 62 Year
  Sex: Male

DRUGS (11)
  1. TRICOR [Suspect]
     Indication: HYPERCHOLESTEROLAEMIA
     Dosage: 145 DAILY PO
     Route: 048
  2. PRAVACHOL [Suspect]
     Indication: HYPERCHOLESTEROLAEMIA
     Dosage: 40 DAILY PO
     Route: 048
  3. METFORMIN HCL [Concomitant]
  4. METOPROLOL TARTRATE [Concomitant]
  5. AVANDIA [Concomitant]
  6. DIOVAN [Concomitant]
  7. HYDROCHLOROTHIAZIDE [Concomitant]
  8. GREEN TEA [Concomitant]
  9. MEGAVITAMINS [Concomitant]
  10. ASPIRIN [Concomitant]
  11. COENZYME Q10 [Concomitant]

REACTIONS (3)
  - PURPURA [None]
  - THROMBOCYTOPENIA [None]
  - TONGUE DISORDER [None]
